FAERS Safety Report 8779878 (Version 1)
Quarter: 2012Q4

REPORT INFORMATION
  Report Type: Spontaneous
  Country: US (occurrence: None)
  Receive Date: 20120905
  Receipt Date: 20120905
  Transmission Date: 20130627
  Serious: Yes (Other)
  Sender: FDA-Public Use
  Company Number: None

PATIENT
  Age: 49 Year
  Sex: Male
  Weight: 204.12 kg

DRUGS (1)
  1. LEVOFLOXACIN [Suspect]

REACTIONS (3)
  - Abasia [None]
  - Tendon disorder [None]
  - Foot deformity [None]
